FAERS Safety Report 8854096 (Version 1)
Quarter: 2012Q4

REPORT INFORMATION
  Report Type: 
  Country: US (occurrence: US)
  Receive Date: 20121022
  Receipt Date: 20121022
  Transmission Date: 20130627
  Serious: Yes (Other)
  Sender: FDA-Public Use
  Company Number: US-BAYER-2012-107946

PATIENT
  Age: 26 Year
  Sex: Female

DRUGS (2)
  1. OCELLA [Suspect]
     Dosage: UNK
     Dates: start: 201004, end: 201108
  2. YASMIN [Suspect]
     Dosage: UNK
     Dates: start: 201004, end: 201108

REACTIONS (1)
  - Cholecystitis chronic [None]
